FAERS Safety Report 12823089 (Version 10)
Quarter: 2017Q1

REPORT INFORMATION
  Report Type: Report from Study
  Country: CA (occurrence: CA)
  Receive Date: 20161006
  Receipt Date: 20170222
  Transmission Date: 20170428
  Serious: Yes (Hospitalization, Other)
  Sender: FDA-Public Use
  Company Number: CA-JNJFOC-20161002255

PATIENT
  Age: 76 Year
  Sex: Male

DRUGS (3)
  1. INSULIN [Suspect]
     Active Substance: INSULIN NOS
     Indication: PRODUCT USED FOR UNKNOWN INDICATION
     Route: 065
  2. IMBRUVICA [Suspect]
     Active Substance: IBRUTINIB
     Indication: CHRONIC LYMPHOCYTIC LEUKAEMIA
     Route: 048
     Dates: start: 201612, end: 20161225
  3. IMBRUVICA [Suspect]
     Active Substance: IBRUTINIB
     Indication: CHRONIC LYMPHOCYTIC LEUKAEMIA
     Route: 048
     Dates: start: 20160926, end: 20161201

REACTIONS (20)
  - Anaphylactic reaction [Recovered/Resolved]
  - Seizure [Recovered/Resolved]
  - Asthenia [Not Recovered/Not Resolved]
  - Night sweats [Recovered/Resolved]
  - Back pain [Recovered/Resolved]
  - Diabetic coma [Recovered/Resolved]
  - Dehydration [Recovered/Resolved]
  - Lymphocytosis [Not Recovered/Not Resolved]
  - Rash [Not Recovered/Not Resolved]
  - Hypotension [Recovered/Resolved]
  - Haemoglobin decreased [Not Recovered/Not Resolved]
  - Lung infection [Recovered/Resolved]
  - Peripheral swelling [Not Recovered/Not Resolved]
  - Chills [Not Recovered/Not Resolved]
  - White blood cell count increased [Not Recovered/Not Resolved]
  - Diarrhoea [Not Recovered/Not Resolved]
  - Decreased appetite [Recovered/Resolved]
  - Platelet count decreased [Not Recovered/Not Resolved]
  - Skin lesion [Not Recovered/Not Resolved]
  - Weight decreased [Not Recovered/Not Resolved]

NARRATIVE: CASE EVENT DATE: 20160929
